FAERS Safety Report 5158384-5 (Version None)
Quarter: 2006Q4

REPORT INFORMATION
  Report Type: 
  Country: None (occurrence: None)
  Receive Date: 20061116
  Receipt Date: 20061011
  Transmission Date: 20070319
  Serious: Yes (Other)
  Sender: FDA-Public Use
  Company Number: GXKR2006GB06465

PATIENT
  Age: 19 Year
  Sex: Female

DRUGS (4)
  1. SALBUTAMOL SULPHATE (NGX) (SALBUTAMOL) [Suspect]
     Indication: PREMATURE LABOUR
     Dosage: SEE IMAGE, INTRAVENOUS
     Route: 042
  2. DEXAMETHASONE TAB [Concomitant]
  3. DEXTROSE [Concomitant]
  4. INSULIN (INSULIN) [Concomitant]

REACTIONS (3)
  - DIABETIC KETOACIDOSIS [None]
  - DRUG EXPOSURE DURING PREGNANCY [None]
  - NORMAL DELIVERY [None]
